FAERS Safety Report 9469441 (Version 2)
Quarter: 2013Q3

REPORT INFORMATION
  Report Type: Report from Study
  Country: PL (occurrence: PL)
  Receive Date: 20130822
  Receipt Date: 20130830
  Transmission Date: 20140515
  Serious: Yes (Other)
  Sender: FDA-Public Use
  Company Number: PL-AMGEN-POLCT2013058427

PATIENT
  Age: 79 Year
  Sex: Female

DRUGS (3)
  1. DENOSUMAB [Suspect]
     Indication: OSTEOPOROSIS POSTMENOPAUSAL
     Dosage: 1.0 UNK, Q6MO
     Route: 058
     Dates: start: 20050103
  2. CONTROLOC                          /01263201/ [Concomitant]
     Dosage: 40 MG, UNK
     Route: 048
  3. EFFERALGAN CODEINE [Concomitant]

REACTIONS (1)
  - Pancreatic disorder [Recovering/Resolving]
